FAERS Safety Report 7934393-5 (Version None)
Quarter: 2011Q4

REPORT INFORMATION
  Report Type: 
  Country: None (occurrence: None)
  Receive Date: 20111122
  Receipt Date: 20110531
  Transmission Date: 20120403
  Serious: Yes (Other)
  Sender: FDA-Public Use
  Company Number: US-GLAXOSMITHKLINE-A0929680A

PATIENT
  Age: 62 Year
  Sex: Female
  Weight: 63.6 kg

DRUGS (5)
  1. BOTOX [Concomitant]
  2. TOPAMAX [Concomitant]
  3. THYROID MEDICATION [Concomitant]
  4. IMITREX [Suspect]
     Indication: MIGRAINE
     Dosage: 1INJ AS REQUIRED
     Route: 058
     Dates: start: 20110425, end: 20110529
  5. AMITRIPTYLINE HCL [Suspect]
     Indication: PRODUCT USED FOR UNKNOWN INDICATION
     Route: 065

REACTIONS (3)
  - SYNCOPE [None]
  - HEADACHE [None]
  - PALPITATIONS [None]
